FAERS Safety Report 23588848 (Version 1)
Quarter: 2024Q1

REPORT INFORMATION
  Report Type: Spontaneous
  Country: DE (occurrence: DE)
  Receive Date: 20240303
  Receipt Date: 20240303
  Transmission Date: 20240410
  Serious: Yes (Death, Hospitalization, Other)
  Sender: FDA-Public Use
  Company Number: DE-EMA-DD-20240219-7482691-064941

PATIENT
  Age: 61 Year
  Sex: Male
  Weight: 80 kg

DRUGS (12)
  1. PEMETREXED [Suspect]
     Active Substance: PEMETREXED
     Indication: Non-small cell lung cancer
     Dosage: 995 MILLIGRAM, CYCLICAL,(FIRST AND ONLY DOSE)
     Route: 042
     Dates: start: 20190115, end: 20190115
  2. CARBOPLATIN [Suspect]
     Active Substance: CARBOPLATIN
     Indication: Non-small cell lung cancer
     Dosage: 679.2 MILLIGRAM, CYCLICAL,CYCLICAL  (FIRST AND ONLY DOSE)
     Route: 042
     Dates: start: 20190115, end: 20190115
  3. PEMBROLIZUMAB [Suspect]
     Active Substance: PEMBROLIZUMAB
     Indication: Non-small cell lung cancer
     Dosage: 200 MILLIGRAM, CYCLICAL,(FIRST AND ONLY DOSE)
     Route: 042
     Dates: start: 20190115, end: 20190115
  4. METFORMIN HYDROCHLORIDE [Concomitant]
     Active Substance: METFORMIN HYDROCHLORIDE
     Indication: Product used for unknown indication
     Dosage: 100 MILLIGRAM, DAILY,ORAL 2X1 DAILY
     Route: 048
     Dates: start: 2018
  5. Novalgin [Concomitant]
     Indication: Product used for unknown indication
     Dosage: 160 GTT DROPS, ONCE A DAY,40 GTT ORALLY, 4X DAILY
     Route: 048
     Dates: start: 2018
  6. ABSTRAL [Concomitant]
     Active Substance: FENTANYL CITRATE
     Indication: Product used for unknown indication
     Dosage: 100 MICROGRAM, ONCE A DAY,100 MICROGRAM ORAL ON DEMAND
     Route: 048
     Dates: start: 2018
  7. RAMIPRIL [Concomitant]
     Active Substance: RAMIPRIL
     Indication: Product used for unknown indication
     Dosage: 10 MILLIGRAM, ONCE A DAY,10 MILLIGRAM (5 MG 2 X 1), DAILY
     Route: 048
     Dates: start: 2018
  8. Ossofortin [Concomitant]
     Indication: Product used for unknown indication
     Dosage: 1 DOSAGE FORM, ONCE A DAY
     Route: 048
     Dates: start: 2018
  9. PALEXIA [Concomitant]
     Active Substance: TAPENTADOL HYDROCHLORIDE
     Indication: Product used for unknown indication
     Dosage: 300 MILLIGRAM, ONCE A DAY,300 MILLIGRAM (150 MG 2 X1) DAILY
     Route: 048
     Dates: start: 2018
  10. PANTOPRAZOLE SODIUM [Concomitant]
     Active Substance: PANTOPRAZOLE SODIUM
     Indication: Product used for unknown indication
     Dosage: 80 MILLIGRAM, ONCE A DAY,(2X1)
     Route: 048
     Dates: start: 2018
  11. PREGABALIN [Concomitant]
     Active Substance: PREGABALIN
     Indication: Product used for unknown indication
     Dosage: 150 MILLIGRAM, ONCE A DAY, (75 MG 2X1)
     Route: 048
     Dates: start: 2018
  12. RAMIPRIL [Concomitant]
     Active Substance: RAMIPRIL
     Indication: Product used for unknown indication
     Dosage: 1 DOSAGE FORM, ONCE A DAY, 1/2 TABLET 2X1 DAILY
     Route: 048
     Dates: start: 2018

REACTIONS (1)
  - Neutropenic sepsis [Fatal]

NARRATIVE: CASE EVENT DATE: 20190121
